FAERS Safety Report 20125222 (Version 1)
Quarter: 2021Q4

REPORT INFORMATION
  Report Type: Spontaneous
  Country: AU (occurrence: None)
  Receive Date: 20211127
  Receipt Date: 20211127
  Transmission Date: 20220303
  Serious: Yes (Hospitalization, Other)
  Sender: FDA-Public Use
  Company Number: None

PATIENT
  Age: 52 Year
  Sex: Female
  Weight: 63 kg

DRUGS (5)
  1. LAMOTRIGINE [Suspect]
     Active Substance: LAMOTRIGINE
     Indication: Bipolar disorder
     Dosage: OTHER QUANTITY : 1 TABLET(S);?
     Route: 048
     Dates: start: 20210701, end: 202111
  2. QUETIAPINE [Concomitant]
     Active Substance: QUETIAPINE
  3. NOCTE ASENAPINE [Concomitant]
  4. NOCTE THYROXINE [Concomitant]
  5. MANE COCP [Concomitant]

REACTIONS (5)
  - Myocarditis [None]
  - Somnolence [None]
  - Troponin increased [None]
  - Bradycardia [None]
  - Left ventricular failure [None]

NARRATIVE: CASE EVENT DATE: 20210901
